FAERS Safety Report 5663784-0 (Version None)
Quarter: 2008Q1

REPORT INFORMATION
  Report Type: 
  Country: None (occurrence: None)
  Receive Date: 20080313
  Receipt Date: 20080303
  Transmission Date: 20080703
  Serious: Yes (Hospitalization)
  Sender: FDA-Public Use
  Company Number: US-GILEAD-2008-0015402

PATIENT
  Sex: Male

DRUGS (1)
  1. LETAIRIS [Suspect]

REACTIONS (4)
  - CARDIAC FAILURE CONGESTIVE [None]
  - FLUID OVERLOAD [None]
  - OEDEMA PERIPHERAL [None]
  - RENAL FAILURE ACUTE [None]
